FAERS Safety Report 9037845 (Version 1)
Quarter: 2013Q1

REPORT INFORMATION
  Report Type: Report from Study
  Country: US (occurrence: US)
  Receive Date: 20130129
  Receipt Date: 20130129
  Transmission Date: 20140127
  Serious: No
  Sender: FDA-Public Use
  Company Number: US-ABBOTT-11P-163-0872870-00

PATIENT
  Age: 23 Year
  Sex: Female

DRUGS (8)
  1. HUMIRA 40 MG/0.8 ML PEN [Suspect]
     Indication: CROHN^S DISEASE
     Dosage: DAY 1
     Dates: start: 20111105
  2. HUMIRA 40 MG/0.8 ML PEN [Suspect]
  3. CANNABIS SATIVA SUBSP. INDICA TOP [Concomitant]
     Indication: NAUSEA
     Dosage: MEDICAL AS REQUIRED BEFORE MEALS
  4. CANNABIS SATIVA SUBSP. INDICA TOP [Concomitant]
     Indication: ABDOMINAL PAIN
  5. CANNABIS SATIVA SUBSP. INDICA TOP [Concomitant]
     Indication: INCREASED APPETITE
  6. DEPO [Concomitant]
     Indication: CONTRACEPTION
  7. NICOTINE [Concomitant]
     Indication: PRODUCT USED FOR UNKNOWN INDICATION
     Dosage: PATCH
  8. VICODIN [Concomitant]
     Indication: PRODUCT USED FOR UNKNOWN INDICATION
     Dosage: PRN

REACTIONS (5)
  - Injection site pain [Recovered/Resolved]
  - Injection site pain [Recovered/Resolved]
  - Injection site urticaria [Recovering/Resolving]
  - Injection site pruritus [Recovering/Resolving]
  - Injection site irritation [Recovering/Resolving]
